FAERS Safety Report 6274581-X (Version None)
Quarter: 2009Q3

REPORT INFORMATION
  Report Type: 
  Country: None (occurrence: None)
  Receive Date: 20090720
  Receipt Date: 20090713
  Transmission Date: 20100115
  Serious: Yes (Other)
  Sender: FDA-Public Use
  Company Number: US-AVENTIS-200916143US

PATIENT
  Sex: Female

DRUGS (2)
  1. LANTUS [Suspect]
     Indication: TYPE 1 DIABETES MELLITUS
     Dosage: DOSE: 12 TO 15
     Route: 058
     Dates: start: 20050101
  2. LEVOXYL [Concomitant]
     Dosage: DOSE: UNK

REACTIONS (1)
  - MALIGNANT MELANOMA [None]
